FAERS Safety Report 10867287 (Version 1)
Quarter: 2015Q1

REPORT INFORMATION
  Report Type: Report from Study
  Country: EC (occurrence: EC)
  Receive Date: 20150225
  Receipt Date: 20150225
  Transmission Date: 20150721
  Serious: Yes (Hospitalization)
  Sender: FDA-Public Use
  Company Number: PHHY2015EC021843

PATIENT
  Age: 66 Year
  Sex: Female

DRUGS (1)
  1. AFINITOR [Suspect]
     Active Substance: EVEROLIMUS
     Indication: METASTATIC NEOPLASM
     Dosage: 10 MG, QD
     Route: 048
     Dates: start: 20141013

REACTIONS (1)
  - Gangrene [Unknown]

NARRATIVE: CASE EVENT DATE: 20150121
